FAERS Safety Report 10040029 (Version 2)
Quarter: 2014Q2

REPORT INFORMATION
  Report Type: Spontaneous
  Country: US (occurrence: US)
  Receive Date: 20140326
  Receipt Date: 20140609
  Transmission Date: 20141212
  Serious: Yes (Death, Other)
  Sender: FDA-Public Use
  Company Number: US-GILEAD-2014-0097887

PATIENT
  Age: 67 Year
  Sex: Female

DRUGS (12)
  1. LETAIRIS [Suspect]
     Indication: PULMONARY ARTERIAL HYPERTENSION
     Dosage: 5 MG, QD
     Route: 065
     Dates: start: 20131015, end: 20140302
  2. LETAIRIS [Suspect]
     Indication: SCLERODERMA
  3. LETAIRIS [Suspect]
     Indication: AUTOIMMUNE DISORDER
  4. LETAIRIS [Suspect]
     Indication: DIASTOLIC DYSFUNCTION
  5. ADCIRCA [Concomitant]
  6. TOPROL [Concomitant]
  7. LASIX                              /00032601/ [Concomitant]
  8. WARFARIN [Concomitant]
  9. LIPITOR [Concomitant]
  10. DOXYCYCLINE [Concomitant]
  11. PLAQUENIL                          /00072603/ [Concomitant]
     Dosage: UNK
     Route: 065
  12. CELEBREX [Concomitant]

REACTIONS (3)
  - Pulmonary arterial hypertension [Fatal]
  - Scleroderma [Fatal]
  - Autoimmune disorder [Fatal]
